FAERS Safety Report 7932649-3 (Version None)
Quarter: 2011Q4

REPORT INFORMATION
  Report Type: 
  Country: None (occurrence: None)
  Receive Date: 20111122
  Receipt Date: 20111110
  Transmission Date: 20120403
  Serious: Yes (Other)
  Sender: FDA-Public Use
  Company Number: JP-BRISTOL-MYERS SQUIBB COMPANY-16226136

PATIENT

DRUGS (1)
  1. TAXOL [Suspect]

REACTIONS (1)
  - CYSTITIS HAEMORRHAGIC [None]
